FAERS Safety Report 14273629 (Version 1)
Quarter: 2017Q4

REPORT INFORMATION
  Report Type: Spontaneous
  Country: US (occurrence: US)
  Receive Date: 20171211
  Receipt Date: 20171211
  Transmission Date: 20180321
  Serious: No
  Sender: FDA-Public Use
  Company Number: US-BAUSCH-BL-2017-018529

PATIENT
  Age: 68 Year
  Sex: Female

DRUGS (4)
  1. HYDROCHLOROTHIAZIDE. [Concomitant]
     Active Substance: HYDROCHLOROTHIAZIDE
     Indication: HYPERTENSION
     Dosage: SEVERAL YEARS AGO
     Route: 048
  2. TOBRAMYCIN AND DEXAMETHASONE [Suspect]
     Active Substance: DEXAMETHASONE\TOBRAMYCIN
     Indication: BLEPHARAL PAPILLOMA
     Dosage: 0.3/0.1 PERCENTAGE
     Route: 047
     Dates: start: 20170601, end: 20170602
  3. METOPROLOL. [Concomitant]
     Active Substance: METOPROLOL
     Indication: HYPERTENSION
     Dosage: SEVERAL YEARS AGO
     Route: 048
  4. FLEXERIL [Concomitant]
     Active Substance: CYCLOBENZAPRINE HYDROCHLORIDE
     Indication: FIBROMYALGIA
     Dosage: SEVERAL YEARS AGO
     Route: 048

REACTIONS (6)
  - Ocular hyperaemia [Recovered/Resolved]
  - Reaction to preservatives [Recovered/Resolved]
  - Eye swelling [Recovered/Resolved]
  - Treatment noncompliance [Unknown]
  - Off label use [Recovered/Resolved]
  - Eye inflammation [Recovered/Resolved]

NARRATIVE: CASE EVENT DATE: 2017
